FAERS Safety Report 9482579 (Version 2)
Quarter: 2013Q3

REPORT INFORMATION
  Report Type: Spontaneous
  Country: DE (occurrence: DE)
  Receive Date: 20130828
  Receipt Date: 20130912
  Transmission Date: 20140515
  Serious: Yes (Other)
  Sender: FDA-Public Use
  Company Number: DE-TEVA-427923GER

PATIENT
  Age: 75 Year
  Sex: Female

DRUGS (3)
  1. FLUOROURACIL [Suspect]
     Indication: COLORECTAL CANCER METASTATIC
     Route: 065
  2. MITOMYCIN [Suspect]
     Indication: COLORECTAL CANCER METASTATIC
     Route: 065
  3. ONCOFOLIC [Suspect]
     Indication: COLORECTAL CANCER METASTATIC
     Route: 050

REACTIONS (8)
  - Granulocytopenia [Unknown]
  - Thrombocytopenia [Unknown]
  - Blood alkaline phosphatase abnormal [Unknown]
  - Leukopenia [Unknown]
  - Aspartate aminotransferase abnormal [Unknown]
  - Haemoglobin abnormal [Unknown]
  - Alanine aminotransferase abnormal [Unknown]
  - Alopecia [Unknown]
